FAERS Safety Report 7556407-7 (Version None)
Quarter: 2011Q2

REPORT INFORMATION
  Report Type: 
  Country: None (occurrence: None)
  Receive Date: 20110620
  Receipt Date: 20110609
  Transmission Date: 20111010
  Serious: Yes (Other)
  Sender: FDA-Public Use
  Company Number: JP-JNJFOC-20110605822

PATIENT
  Age: 90 Year
  Sex: Female

DRUGS (4)
  1. LEVOFLOXACIN [Suspect]
     Indication: UPPER RESPIRATORY TRACT INFLAMMATION
     Route: 065
  2. SALOBEL [Concomitant]
     Route: 065
  3. LOXONIN [Concomitant]
     Route: 065
  4. THYRADIN [Concomitant]
     Route: 065

REACTIONS (1)
  - DELIRIUM [None]
